FAERS Safety Report 6775457-1 (Version None)
Quarter: 2010Q2

REPORT INFORMATION
  Report Type: 
  Country: None (occurrence: None)
  Receive Date: 20100617
  Receipt Date: 20100607
  Transmission Date: 20101027
  Serious: Yes (Other)
  Sender: FDA-Public Use
  Company Number: US-PFIZER INC-2010071818

PATIENT
  Sex: Female

DRUGS (6)
  1. GLIPIZIDE [Suspect]
     Indication: DIABETES MELLITUS
     Dosage: 10 MG, 2X/DAY
     Route: 048
  2. LISINOPRIL [Concomitant]
     Indication: BLOOD PRESSURE INCREASED
     Dosage: 40 MG, 2X/DAY
  3. TOPROL-XL [Concomitant]
     Dosage: 25 MG, 1X/DAY
  4. METFORMIN [Concomitant]
     Dosage: 1000 MG, 2X/DAY
  5. SIMVASTATIN [Concomitant]
     Dosage: 20 MG, 1X/DAY
  6. GLUCOSAMINE HYDROCHLORIDE/CHONDROITIN SULFATE [Concomitant]
     Dosage: 2 TABLETS PER DAY

REACTIONS (2)
  - LYMPHOEDEMA [None]
  - OSTEOARTHRITIS [None]
